FAERS Safety Report 9498584 (Version 3)
Quarter: 2013Q4

REPORT INFORMATION
  Report Type: Spontaneous
  Country: US (occurrence: US)
  Receive Date: 20130904
  Receipt Date: 20131115
  Transmission Date: 20140711
  Serious: No
  Sender: FDA-Public Use
  Company Number: US-PFIZER INC-2013252269

PATIENT
  Age: 85 Year
  Sex: Female

DRUGS (2)
  1. XELJANZ [Suspect]
     Dosage: UNK
     Dates: start: 201306
  2. XELJANZ [Suspect]
     Dosage: UNK
     Dates: start: 20131001

REACTIONS (2)
  - Alopecia [Unknown]
  - Pain in extremity [Unknown]
